FAERS Safety Report 5742707-X (Version None)
Quarter: 2008Q2

REPORT INFORMATION
  Report Type: 
  Country: None (occurrence: None)
  Receive Date: 20080519
  Receipt Date: 20080515
  Transmission Date: 20081010
  Serious: Yes (Hospitalization)
  Sender: FDA-Public Use
  Company Number: B0511383A

PATIENT
  Age: 86 Year
  Sex: Female
  Weight: 50 kg

DRUGS (9)
  1. VALTREX [Suspect]
     Indication: HERPES ZOSTER
     Dosage: 1000MG THREE TIMES PER DAY
     Route: 048
     Dates: start: 20080225, end: 20080301
  2. AMARYL [Concomitant]
     Indication: DIABETES MELLITUS
     Dosage: 1MG TWICE PER DAY
     Route: 048
     Dates: end: 20080301
  3. METFORMIN HYDROCHLORIDE [Concomitant]
     Indication: DIABETES MELLITUS
     Dosage: 250MG TWICE PER DAY
     Route: 048
     Dates: end: 20080301
  4. MICARDIS [Concomitant]
     Indication: HYPERTENSION
     Dosage: 20MG TWICE PER DAY
     Route: 048
     Dates: end: 20080301
  5. ATELEC [Concomitant]
     Indication: HYPERTENSION
     Dosage: 5MG TWICE PER DAY
     Route: 048
     Dates: end: 20080301
  6. PRAVASTATIN SODIUM [Concomitant]
     Dosage: 5MG PER DAY
     Route: 048
     Dates: end: 20080301
  7. BIOFERMIN [Concomitant]
     Indication: GASTROENTERITIS
     Dosage: 1G PER DAY
     Route: 048
     Dates: end: 20080301
  8. GASMOTIN [Concomitant]
     Indication: GASTROENTERITIS
     Dosage: 5MG PER DAY
     Route: 048
     Dates: end: 20080301
  9. RANITIDINE HYDROCHLORIDE [Concomitant]
     Indication: GASTRITIS
     Dosage: 150MG PER DAY
     Route: 048
     Dates: end: 20080301

REACTIONS (5)
  - ASTHENIA [None]
  - BLOOD CREATININE INCREASED [None]
  - DEPRESSED LEVEL OF CONSCIOUSNESS [None]
  - RENAL FAILURE ACUTE [None]
  - SOMNOLENCE [None]
